FAERS Safety Report 24925055 (Version 1)
Quarter: 2025Q1

REPORT INFORMATION
  Report Type: Report from Study
  Country: US (occurrence: US)
  Receive Date: 20250204
  Receipt Date: 20250204
  Transmission Date: 20250408
  Serious: No
  Sender: EXELIXIS
  Company Number: US-EXELIXIS-CABO-24077666

PATIENT
  Age: 78 Year
  Sex: Female

DRUGS (12)
  1. CABOMETYX [Suspect]
     Active Substance: CABOZANTINIB S-MALATE
     Indication: Malignant neoplasm of renal pelvis
     Dosage: 20 MG, QOD
     Route: 048
     Dates: start: 202311
  2. ALLOPURINOL [Concomitant]
     Active Substance: ALLOPURINOL
  3. AMIODARONE HYDROCHLORIDE [Concomitant]
     Active Substance: AMIODARONE HYDROCHLORIDE
  4. BUMETANIDE [Concomitant]
     Active Substance: BUMETANIDE
  5. CARVEDILOL [Concomitant]
     Active Substance: CARVEDILOL
  6. ELIQUIS [Concomitant]
     Active Substance: APIXABAN
  7. HYDROCODONE [Concomitant]
     Active Substance: HYDROCODONE
  8. LEVEMIR [Concomitant]
     Active Substance: INSULIN DETEMIR
  9. NOVOLOG [Concomitant]
     Active Substance: INSULIN ASPART
  10. PRAVASTATIN [Concomitant]
     Active Substance: PRAVASTATIN
  11. SEMGLEE [Concomitant]
  12. SERTRALINE [Concomitant]
     Active Substance: SERTRALINE HYDROCHLORIDE

REACTIONS (4)
  - Gingival bleeding [Recovered/Resolved]
  - Tooth fracture [Unknown]
  - Inappropriate schedule of product administration [Unknown]
  - Off label use [Unknown]

NARRATIVE: CASE EVENT DATE: 20231101
